FAERS Safety Report 5705657-0 (Version None)
Quarter: 2008Q2

REPORT INFORMATION
  Report Type: 
  Country: None (occurrence: None)
  Receive Date: 20080415
  Receipt Date: 20080403
  Transmission Date: 20081010
  Serious: Yes (Life-Threatening, Hospitalization, Other)
  Sender: FDA-Public Use
  Company Number: FR-JNJFOC-20080103552

PATIENT
  Age: 6 Decade
  Sex: Female
  Weight: 85 kg

DRUGS (14)
  1. REMICADE [Suspect]
     Route: 042
  2. REMICADE [Suspect]
     Route: 042
  3. REMICADE [Suspect]
     Route: 042
  4. REMICADE [Suspect]
     Route: 042
  5. REMICADE [Suspect]
     Route: 042
  6. REMICADE [Suspect]
     Indication: PSORIASIS
     Route: 042
  7. METHOTREXATE [Concomitant]
     Indication: PSORIASIS
  8. IMUREL [Concomitant]
     Indication: PSORIASIS
  9. SEROPRAM [Concomitant]
  10. PLAVIX [Concomitant]
  11. NOCTRAN [Concomitant]
  12. TRAMADOL HCL [Concomitant]
  13. MYOLASTAN [Concomitant]
  14. ENBREL [Concomitant]
     Indication: PSORIASIS

REACTIONS (8)
  - ANAPHYLACTIC SHOCK [None]
  - ARTHRALGIA [None]
  - DRUG INEFFECTIVE [None]
  - HYPOTENSION [None]
  - INFUSION RELATED REACTION [None]
  - MYALGIA [None]
  - PYREXIA [None]
  - RASH [None]
